FAERS Safety Report 4385671-0 (Version None)
Quarter: 2004Q2

REPORT INFORMATION
  Report Type: 
  Country: None (occurrence: None)
  Receive Date: 20040625
  Receipt Date: 20040625
  Transmission Date: 20050107
  Serious: Yes (Life-Threatening)
  Sender: FDA-Public Use
  Company Number: None

PATIENT
  Age: 63 Year
  Sex: Male
  Weight: 68.0396 kg

DRUGS (8)
  1. TAXOL [Suspect]
     Indication: SMALL CELL LUNG CANCER STAGE UNSPECIFIED
     Dosage: 75MG/M2 D1:D8 IV
     Route: 042
     Dates: start: 20040513
  2. TAXOL [Suspect]
     Indication: SMALL CELL LUNG CANCER STAGE UNSPECIFIED
     Dosage: 75MG/M2 D1:D8 IV
     Route: 042
     Dates: start: 20040520
  3. TAXOL [Suspect]
     Indication: SMALL CELL LUNG CANCER STAGE UNSPECIFIED
     Dosage: 75MG/M2 D1:D8 IV
     Route: 042
     Dates: start: 20040603
  4. TAXOL [Suspect]
     Indication: SMALL CELL LUNG CANCER STAGE UNSPECIFIED
     Dosage: 75MG/M2 D1:D8 IV
     Route: 042
     Dates: start: 20040610
  5. IRINOTECAN [Suspect]
     Indication: SMALL CELL LUNG CANCER STAGE UNSPECIFIED
     Dosage: 50MG/M2 D1;D8 IV
     Route: 042
     Dates: start: 20040513
  6. IRINOTECAN [Suspect]
     Indication: SMALL CELL LUNG CANCER STAGE UNSPECIFIED
     Dosage: 50MG/M2 D1;D8 IV
     Route: 042
     Dates: start: 20040520
  7. IRINOTECAN [Suspect]
     Indication: SMALL CELL LUNG CANCER STAGE UNSPECIFIED
     Dosage: 50MG/M2 D1;D8 IV
     Route: 042
     Dates: start: 20040603
  8. IRINOTECAN [Suspect]
     Indication: SMALL CELL LUNG CANCER STAGE UNSPECIFIED
     Dosage: 50MG/M2 D1;D8 IV
     Route: 042
     Dates: start: 20040610

REACTIONS (5)
  - CONVULSION [None]
  - CORONARY ARTERY STENOSIS [None]
  - HAEMODYNAMIC INSTABILITY [None]
  - HYPOTENSION [None]
  - MYOCARDIAL INFARCTION [None]
